FAERS Safety Report 19904097 (Version 1)
Quarter: 2021Q4

REPORT INFORMATION
  Report Type: Spontaneous
  Country: GB (occurrence: GB)
  Receive Date: 20211001
  Receipt Date: 20211001
  Transmission Date: 20220303
  Serious: Yes (Other)
  Sender: FDA-Public Use
  Company Number: None

PATIENT
  Age: 3 Year
  Sex: Male

DRUGS (2)
  1. MONTELUKAST [Suspect]
     Active Substance: MONTELUKAST SODIUM
     Indication: Sleep apnoea syndrome
     Dosage: 4 MG
     Route: 065
     Dates: start: 20200612, end: 20210319
  2. FLUTICASONE PROPIONATE [Concomitant]
     Active Substance: FLUTICASONE PROPIONATE
     Indication: Tonsillar hypertrophy
     Dosage: EACH NOSTRIL, 800 MICROGRAM
     Route: 045
     Dates: start: 20200612

REACTIONS (3)
  - Behaviour disorder [Recovered/Resolved]
  - Aggression [Recovered/Resolved]
  - Anger [Recovered/Resolved]
